FAERS Safety Report 5887127-2 (Version None)
Quarter: 2008Q3

REPORT INFORMATION
  Report Type: 
  Country: None (occurrence: None)
  Receive Date: 20080917
  Receipt Date: 20080909
  Transmission Date: 20090109
  Serious: Yes (Hospitalization, Other)
  Sender: FDA-Public Use
  Company Number: FR-AMGEN-UK304994

PATIENT
  Sex: Female
  Weight: 38 kg

DRUGS (2)
  1. KINERET [Suspect]
     Indication: DRUG USE FOR UNKNOWN INDICATION
     Route: 058
     Dates: start: 20050701
  2. KINERET [Suspect]
     Route: 058
     Dates: start: 20080826, end: 20080829

REACTIONS (2)
  - HERPES VIRUS INFECTION [None]
  - NEUTROPENIA [None]
